FAERS Safety Report 7172012-9 (Version None)
Quarter: 2010Q4

REPORT INFORMATION
  Report Type: 
  Country: None (occurrence: None)
  Receive Date: 20101217
  Receipt Date: 20100130
  Transmission Date: 20110411
  Serious: No
  Sender: FDA-Public Use
  Company Number: US-AMGEN-KDL389883

PATIENT

DRUGS (2)
  1. ENBREL [Suspect]
     Indication: RHEUMATOID ARTHRITIS
     Dosage: 50 MG, QWK
     Route: 058
     Dates: start: 20081218
  2. METHOTREXATE [Concomitant]

REACTIONS (4)
  - ALOPECIA [None]
  - INJECTION SITE PAIN [None]
  - MOUTH ULCERATION [None]
  - SKIN ULCER [None]
